FAERS Safety Report 6013569 (Version 12)
Quarter: 2013Q2

REPORT INFORMATION
  Report Type: Spontaneous
  Country: US (occurrence: US)
  Receive Date: 20060328
  Receipt Date: 20130403
  Transmission Date: 20140414
  Serious: Yes (Death, Hospitalization, Other)
  Sender: FDA-Public Use
  Company Number: PHEH2006US03541

PATIENT
  Age: 69 Year
  Sex: Male
  Weight: 97.51 kg

DRUGS (24)
  1. ZOMETA [Suspect]
     Indication: METASTASES TO BONE
     Dosage: 4 MG, QMO
     Dates: start: 20030206, end: 20041215
  2. ZOMETA [Suspect]
     Indication: PLASMACYTOMA
     Dosage: 4 MG, QMO
     Route: 042
     Dates: end: 2005
  3. LIPITOR /UNK/ [Concomitant]
     Dosage: 20 MG, UNK
  4. RANITIDINE [Concomitant]
  5. ZOCOR [Concomitant]
     Indication: HYPERLIPIDAEMIA
  6. PROTONIX [Concomitant]
  7. WARFARIN [Concomitant]
  8. FLUCONAZOLE [Concomitant]
  9. COUMADIN [Concomitant]
  10. PREVACID [Concomitant]
  11. TYLENOL [Concomitant]
  12. AMOXICILLIN [Concomitant]
  13. LIPITOR [Concomitant]
  14. LISINOPRIL [Concomitant]
  15. NEXIUM [Concomitant]
  16. VALTREX [Concomitant]
  17. VORICONAZOLE [Concomitant]
     Dosage: 200 MG, UNK
  18. VINCRISTINE [Concomitant]
  19. DOXORUBICIN [Concomitant]
  20. SENOKOT                                 /UNK/ [Concomitant]
  21. BACTRIM [Concomitant]
  22. HYDROMORPHONE [Concomitant]
  23. PREDNISONE [Concomitant]
     Dosage: 50 MG, BID
  24. DIFLUCAN [Concomitant]

REACTIONS (111)
  - Death [Fatal]
  - Osteonecrosis of jaw [Unknown]
  - Bone pain [Unknown]
  - Lymphadenopathy [Unknown]
  - Osteolysis [Unknown]
  - Mastication disorder [Unknown]
  - Swelling [Unknown]
  - Osteoradionecrosis [Unknown]
  - Osteomyelitis [Unknown]
  - Bone disorder [Unknown]
  - Pain [Unknown]
  - Edentulous [Unknown]
  - Weight decreased [Recovering/Resolving]
  - Glossodynia [Unknown]
  - Trismus [Unknown]
  - Jaw fracture [Unknown]
  - Tongue injury [Unknown]
  - Haemorrhage [Unknown]
  - Dental caries [Unknown]
  - Plasmacytoma [Unknown]
  - Fracture [Unknown]
  - Abscess jaw [Unknown]
  - Submandibular mass [Unknown]
  - Mass [Unknown]
  - Pneumothorax [Recovered/Resolved]
  - Atrial fibrillation [Unknown]
  - Pneumonitis [Unknown]
  - Arteriosclerosis coronary artery [Unknown]
  - Epistaxis [Unknown]
  - Constipation [Unknown]
  - Vision blurred [Unknown]
  - Dyspnoea [Unknown]
  - Gait disturbance [Unknown]
  - Walking aid user [Unknown]
  - Wheelchair user [Unknown]
  - Papilloedema [Unknown]
  - Encephalopathy [Unknown]
  - Dizziness [Unknown]
  - Syncope [Unknown]
  - Hiatus hernia [Unknown]
  - Pleural fibrosis [Unknown]
  - Cardiomegaly [Unknown]
  - Neuropathy peripheral [Unknown]
  - Interstitial lung disease [Unknown]
  - Brain neoplasm [Unknown]
  - Skin cancer [Unknown]
  - Second primary malignancy [Unknown]
  - Arthropathy [Unknown]
  - Pericardial effusion [Unknown]
  - Tricuspid valve incompetence [Unknown]
  - Sinusitis [Unknown]
  - Pleural effusion [Unknown]
  - Dysuria [Unknown]
  - Haematuria [Unknown]
  - Adrenal mass [Unknown]
  - Prostatomegaly [Unknown]
  - Lymphoma [Unknown]
  - Lymphoproliferative disorder [Unknown]
  - Central nervous system lesion [Unknown]
  - Idiopathic pulmonary fibrosis [Unknown]
  - Pulmonary oedema [Unknown]
  - Diaphragmatic hernia [Unknown]
  - Intervertebral disc degeneration [Unknown]
  - Vascular calcification [Unknown]
  - Spinal osteoarthritis [Unknown]
  - Facet joint syndrome [Unknown]
  - Mastoid effusion [Unknown]
  - Mitral valve calcification [Unknown]
  - Aortic valve calcification [Unknown]
  - Aortic valve incompetence [Unknown]
  - Induration [Unknown]
  - Dysphagia [Unknown]
  - Osteosclerosis [Unknown]
  - Oral discomfort [Unknown]
  - Febrile neutropenia [Unknown]
  - Hallucination [Unknown]
  - Odynophagia [Unknown]
  - Oesophagitis [Unknown]
  - Lung infiltration [Unknown]
  - Pain in jaw [Unknown]
  - Atelectasis [Unknown]
  - Pleural calcification [Unknown]
  - Dermatitis [Unknown]
  - Myocardial ischaemia [Unknown]
  - Thoracic vertebral fracture [Unknown]
  - Ecchymosis [Unknown]
  - Respiratory failure [Unknown]
  - Acute myocardial infarction [Unknown]
  - Kyphosis [Unknown]
  - Spondylolisthesis [Unknown]
  - Gingival swelling [Unknown]
  - Bone lesion [Unknown]
  - Nephropathy [Unknown]
  - Exposed bone in jaw [Unknown]
  - Plasma cell myeloma [Unknown]
  - Malignant neoplasm progression [Unknown]
  - Bone loss [Unknown]
  - Primary sequestrum [Unknown]
  - Intervertebral disc space narrowing [Unknown]
  - Osteoporosis [Unknown]
  - Chest discomfort [Unknown]
  - Bladder mass [Unknown]
  - Hypokalaemia [Unknown]
  - Fall [Unknown]
  - Hypoxia [Unknown]
  - Convulsion [Unknown]
  - Leukocytosis [Unknown]
  - Mental status changes [Unknown]
  - Pneumonia aspiration [Unknown]
  - Sepsis [Unknown]
  - Aspergillus infection [Unknown]
